FAERS Safety Report 19042548 (Version 1)
Quarter: 2021Q1

REPORT INFORMATION
  Report Type: Spontaneous
  Country: US (occurrence: US)
  Receive Date: 20210322
  Receipt Date: 20210322
  Transmission Date: 20210420
  Serious: Yes (Other)
  Sender: FDA-Public Use
  Company Number: None

PATIENT
  Age: 43 Year
  Sex: Female
  Weight: 92.1 kg

DRUGS (9)
  1. INFED [Suspect]
     Active Substance: IRON DEXTRAN
     Indication: MICROCYTIC ANAEMIA
     Dosage: ?          OTHER FREQUENCY:ONCE;?
     Route: 042
  2. CITALOPRAM [Concomitant]
     Active Substance: CITALOPRAM HYDROBROMIDE
  3. ALBUTEROL. [Concomitant]
     Active Substance: ALBUTEROL
  4. CERTRIZINE [Concomitant]
  5. PREGABALIN. [Concomitant]
     Active Substance: PREGABALIN
  6. TOPIRAMATE. [Concomitant]
     Active Substance: TOPIRAMATE
  7. IBUPROFEN. [Concomitant]
     Active Substance: IBUPROFEN
  8. TRETINOIN TOPICAL [Concomitant]
     Active Substance: TRETINOIN
  9. TRIAMCINOLONE TOPICAL [Concomitant]

REACTIONS (3)
  - Flushing [None]
  - Dyspnoea [None]
  - Pruritus [None]
